FAERS Safety Report 14860301 (Version 2)
Quarter: 2018Q2

REPORT INFORMATION
  Report Type: Spontaneous
  Country: AR (occurrence: AR)
  Receive Date: 20180508
  Receipt Date: 20180629
  Transmission Date: 20180711
  Serious: Yes (Hospitalization, Other)
  Sender: FDA-Public Use
  Company Number: AR-ALEXION PHARMACEUTICALS INC.-A201805189

PATIENT
  Age: 17 Month
  Sex: Female

DRUGS (2)
  1. STRENSIQ [Suspect]
     Active Substance: ASFOTASE ALFA
     Dosage: 2 MG/KG, TIW
     Route: 058
     Dates: start: 20170903
  2. STRENSIQ [Suspect]
     Active Substance: ASFOTASE ALFA
     Indication: HYPOPHOSPHATASIA
     Dosage: 2 MG/KG, UNK
     Route: 065
     Dates: start: 20170309

REACTIONS (18)
  - Acute respiratory failure [Unknown]
  - Adenovirus infection [Recovered/Resolved]
  - Lung infiltration [Unknown]
  - Blood glucose increased [Unknown]
  - Enterobacter test positive [Recovered/Resolved]
  - Pyrexia [Unknown]
  - Haematocrit decreased [Unknown]
  - Blood thyroid stimulating hormone decreased [Unknown]
  - Cyanosis [Not Recovered/Not Resolved]
  - Adenovirus test positive [Recovered/Resolved]
  - Lower respiratory tract infection [Not Recovered/Not Resolved]
  - Septic shock [Unknown]
  - Partial seizures [Unknown]
  - Blood creatinine decreased [Unknown]
  - Blood urea decreased [Unknown]
  - Thyroxine decreased [Unknown]
  - Respiratory arrest [Not Recovered/Not Resolved]
  - Platelet count decreased [Unknown]

NARRATIVE: CASE EVENT DATE: 20180422
